FAERS Safety Report 6429614-4 (Version None)
Quarter: 2009Q4

REPORT INFORMATION
  Report Type: 
  Country: None (occurrence: None)
  Receive Date: 20091103
  Receipt Date: 20091019
  Transmission Date: 20100525
  Serious: Yes (Hospitalization)
  Sender: FDA-Public Use
  Company Number: 02100-JPN-06-0325

PATIENT
  Age: 79 Year
  Sex: Male
  Weight: 67.7 kg

DRUGS (3)
  1. PLETAL [Suspect]
     Indication: CEREBRAL INFARCTION
     Dosage: 81 MG, QD ORAL
     Route: 048
     Dates: start: 20041223, end: 20060629
  2. NATEGLINIDE [Concomitant]
  3. MEDET (METFORMIN HYDROCHLORIDE) [Concomitant]

REACTIONS (2)
  - GINGIVAL HYPERPLASIA [None]
  - PERIODONTITIS [None]
